FAERS Safety Report 4634944-2 (Version None)
Quarter: 2005Q2

REPORT INFORMATION
  Report Type: 
  Country: None (occurrence: None)
  Receive Date: 20050411
  Receipt Date: 20040601
  Transmission Date: 20051028
  Serious: Yes (Other)
  Sender: FDA-Public Use
  Company Number: 8128

PATIENT
  Age: 62 Year
  Sex: Female

DRUGS (3)
  1. DOXORUBICIN HCL [Suspect]
     Indication: OVARIAN CANCER
     Dosage: 40 MG/M2 PER_CYCLE
  2. PACLITAXEL [Suspect]
     Indication: OVARIAN CANCER
  3. CARBOPLATIN [Suspect]
     Indication: OVARIAN CANCER

REACTIONS (16)
  - ARTHRALGIA [None]
  - ATROPHIC VULVOVAGINITIS [None]
  - BLISTER [None]
  - CONDITION AGGRAVATED [None]
  - DYSPAREUNIA [None]
  - DYSPNOEA [None]
  - ERYTHEMA [None]
  - INFLAMMATION [None]
  - PAIN [None]
  - PERIPHERAL SENSORY NEUROPATHY [None]
  - RASH [None]
  - STOMATITIS [None]
  - TENDERNESS [None]
  - VAGINAL DISCHARGE [None]
  - VAGINITIS BACTERIAL [None]
  - VULVOVAGINAL DRYNESS [None]
